FAERS Safety Report 5920984-X (Version None)
Quarter: 2008Q4

REPORT INFORMATION
  Report Type: 
  Country: None (occurrence: None)
  Receive Date: 20081014
  Receipt Date: 20080929
  Transmission Date: 20090506
  Serious: Yes (Death)
  Sender: FDA-Public Use
  Company Number: 2008002526

PATIENT

DRUGS (1)
  1. ERLOTINIB (ERLOTINIB) (TABLET) (ERLOTINIB) [Suspect]
     Indication: BRAIN NEOPLASM
     Dosage: ORAL
     Route: 048

REACTIONS (1)
  - TUMOUR HAEMORRHAGE [None]
